FAERS Safety Report 11595755 (Version 1)
Quarter: 2015Q4

REPORT INFORMATION
  Report Type: Spontaneous
  Country: SE (occurrence: SE)
  Receive Date: 20151006
  Receipt Date: 20151006
  Transmission Date: 20160304
  Serious: Yes (Other)
  Sender: FDA-Public Use
  Company Number: SE-SUN PHARMACEUTICAL INDUSTRIES LTD-2015R1-104028

PATIENT
  Age: 12 Year
  Sex: Male

DRUGS (10)
  1. AMIKACIN [Suspect]
     Active Substance: AMIKACIN
     Indication: MYCOBACTERIUM ABSCESSUS INFECTION
     Dosage: UNK
  2. CLARITHROMYCIN. [Suspect]
     Active Substance: CLARITHROMYCIN
     Indication: MYCOBACTERIUM ABSCESSUS INFECTION
  3. AMIKACIN [Suspect]
     Active Substance: AMIKACIN
     Indication: MASTOIDITIS
     Dosage: UNK
     Route: 065
     Dates: end: 2013
  4. CLARITHROMYCIN. [Suspect]
     Active Substance: CLARITHROMYCIN
     Indication: MYCOBACTERIUM ABSCESSUS INFECTION
  5. CLARITHROMYCIN. [Suspect]
     Active Substance: CLARITHROMYCIN
     Indication: MASTOIDITIS
     Dosage: UNK
     Route: 065
     Dates: start: 2014
  6. LINEZOLID. [Suspect]
     Active Substance: LINEZOLID
     Indication: MASTOIDITIS
     Dosage: UNK
     Route: 065
  7. CLARITHROMYCIN. [Suspect]
     Active Substance: CLARITHROMYCIN
     Indication: MASTOIDITIS
     Dosage: UNK
     Route: 065
     Dates: end: 2013
  8. AMIKACIN [Suspect]
     Active Substance: AMIKACIN
     Indication: MASTOIDITIS
     Dosage: UNK
     Route: 065
     Dates: start: 2014, end: 2014
  9. AMIKACIN [Suspect]
     Active Substance: AMIKACIN
     Indication: MYCOBACTERIUM ABSCESSUS INFECTION
  10. LINEZOLID. [Suspect]
     Active Substance: LINEZOLID
     Indication: MYCOBACTERIUM ABSCESSUS INFECTION

REACTIONS (3)
  - Drug ineffective [Unknown]
  - Anaemia [Unknown]
  - Fatigue [Unknown]
